FAERS Safety Report 8229061-9 (Version None)
Quarter: 2012Q1

REPORT INFORMATION
  Report Type: 
  Country: None (occurrence: None)
  Receive Date: 20120322
  Receipt Date: 20120314
  Transmission Date: 20120608
  Serious: Yes (Hospitalization, Other)
  Sender: FDA-Public Use
  Company Number: DE-NOVOPROD-332721

PATIENT
  Age: 64 Year
  Sex: Male
  Weight: 102.6 kg

DRUGS (7)
  1. COSOPT [Concomitant]
     Indication: PRODUCT USED FOR UNKNOWN INDICATION
  2. LEVOTHYROXINE SODIUM [Concomitant]
     Dosage: 50 UG, QD
     Route: 048
     Dates: start: 20070501
  3. NEBIDO [Concomitant]
     Dosage: UNK
     Route: 030
     Dates: start: 20080201
  4. LOSARTAN POTASSIUM AND HYDROCHLOROTHIAZIDE [Concomitant]
     Route: 048
  5. TAMSULOSIN HCL [Concomitant]
  6. NORDITROPIN [Suspect]
     Indication: HYPOPITUITARISM
     Dosage: 0.175 MG, QD
     Route: 058
     Dates: start: 20080222, end: 20110727
  7. HYDROCORTISON                      /00028601/ [Concomitant]
     Dosage: 10 MG, UNK
     Route: 048
     Dates: start: 20070501

REACTIONS (1)
  - PROSTATE CANCER [None]
